FAERS Safety Report 26169107 (Version 1)
Quarter: 2025Q4

REPORT INFORMATION
  Report Type: Spontaneous
  Country: US (occurrence: None)
  Receive Date: 20251216
  Receipt Date: 20251216
  Transmission Date: 20260118
  Serious: Yes (Hospitalization)
  Sender: FDA-CTU
  Company Number: None

PATIENT
  Sex: Female

DRUGS (10)
  1. NUCALA [Suspect]
     Active Substance: MEPOLIZUMAB
     Indication: Asthma
     Dosage: INJECT 1 PEN UNDER THE SKIN (SUBCUTANEOUS INJECTION) EVERY 4 WEEKS
     Route: 058
     Dates: start: 20250625
  2. ASPIRIN [Concomitant]
     Active Substance: ASPIRIN
  3. AZITHROMYCIN [Concomitant]
     Active Substance: AZITHROMYCIN
  4. CLOPIDOGREL [Concomitant]
     Active Substance: CLOPIDOGREL BISULFATE
  5. COMBIVENT AER 20-100 [Concomitant]
  6. ETHAMBUTOL TAB100MG [Concomitant]
  7. PANTOPRAZOLE TAB 40MG [Concomitant]
  8. PANTOPRAZOLE TAB 40MG [Concomitant]
  9. SPIRIVA AER 1.25MCG [Concomitant]
  10. TRELEGY AER 200MCG [Concomitant]

REACTIONS (2)
  - Pneumonia [None]
  - Quality of life decreased [None]
